FAERS Safety Report 10460197 (Version 1)
Quarter: 2014Q3

REPORT INFORMATION
  Report Type: Spontaneous
  Country: US (occurrence: US)
  Receive Date: 20140917
  Receipt Date: 20140917
  Transmission Date: 20150326
  Serious: Yes (Hospitalization)
  Sender: FDA-Public Use
  Company Number: US-GLAXOSMITHKLINE-A1088651A

PATIENT
  Age: 68 Year
  Sex: Female

DRUGS (13)
  1. GLIPIZIDE. [Concomitant]
     Active Substance: GLIPIZIDE
  2. ACYCLOVIR. [Concomitant]
     Active Substance: ACYCLOVIR
  3. CLONAZEPAM. [Concomitant]
     Active Substance: CLONAZEPAM
  4. METFORMIN [Concomitant]
     Active Substance: METFORMIN HYDROCHLORIDE
  5. LEVOTHYROXINE [Concomitant]
     Active Substance: LEVOTHYROXINE
  6. ARIMIDEX [Concomitant]
     Active Substance: ANASTROZOLE
  7. FLUOXETINE [Concomitant]
     Active Substance: FLUOXETINE\FLUOXETINE HYDROCHLORIDE
  8. LISINOPRIL. [Concomitant]
     Active Substance: LISINOPRIL
  9. WARFARIN [Concomitant]
     Active Substance: WARFARIN
  10. TRAMADOL [Concomitant]
     Active Substance: TRAMADOL
  11. LEVEMIR [Concomitant]
     Active Substance: INSULIN DETEMIR
  12. PRAVASTATIN [Concomitant]
     Active Substance: PRAVASTATIN\PRAVASTATIN SODIUM
  13. RYTHMOL [Suspect]
     Active Substance: PROPAFENONE HYDROCHLORIDE
     Indication: ATRIAL FIBRILLATION
     Dosage: 225MG TWICE PER DAY
     Route: 048
     Dates: start: 2012

REACTIONS (6)
  - Palpitations [Unknown]
  - Infection [Unknown]
  - Anxiety [Unknown]
  - Pain in extremity [Unknown]
  - Ill-defined disorder [Unknown]
  - Drug dose omission [Unknown]
